FAERS Safety Report 14695550 (Version 1)
Quarter: 2018Q1

REPORT INFORMATION
  Report Type: Spontaneous
  Country: US (occurrence: US)
  Receive Date: 20180327
  Receipt Date: 20180327
  Transmission Date: 20180509
  Serious: No
  Sender: FDA-Public Use
  Company Number: None

PATIENT
  Age: 53 Year
  Sex: Male

DRUGS (14)
  1. FAMOTIDINE. [Concomitant]
     Active Substance: FAMOTIDINE
  2. FLUTICASONE. [Concomitant]
     Active Substance: FLUTICASONE
  3. SCOPOLAMINE [Concomitant]
     Active Substance: SCOPOLAMINE
  4. SULFAMETHOXAZOLE/TRIETHOPRIM [Concomitant]
  5. TACROLIMUS. [Suspect]
     Active Substance: TACROLIMUS
     Indication: IMMUNOSUPPRESSION
     Route: 048
     Dates: start: 20170928, end: 20171112
  6. SALMETEROL [Concomitant]
     Active Substance: SALMETEROL
  7. GANCICLOVIR. [Concomitant]
     Active Substance: GANCICLOVIR
  8. HEPARIN [Concomitant]
     Active Substance: HEPARIN SODIUM
  9. INSULIN ASPART [Concomitant]
     Active Substance: INSULIN ASPART
  10. METHYLPREDNISOLONE. [Concomitant]
     Active Substance: METHYLPREDNISOLONE
  11. TIOTROPIUM [Concomitant]
     Active Substance: TIOTROPIUM
  12. PIPERACILLIN/TAZOBACTAM [Concomitant]
     Active Substance: PIPERACILLIN SODIUM\TAZOBACTAM SODIUM
  13. TACROLIMUS. [Concomitant]
     Active Substance: TACROLIMUS
  14. MYCOPHENOLATE [Concomitant]
     Active Substance: MYCOPHENOLIC ACID

REACTIONS (9)
  - Toxicity to various agents [None]
  - Hypoxia [None]
  - Aspiration [None]
  - Mental status changes [None]
  - Transplant rejection [None]
  - Agitation [None]
  - Mydriasis [None]
  - Seizure [None]
  - Drug level increased [None]

NARRATIVE: CASE EVENT DATE: 20171113
